FAERS Safety Report 5630006-6 (Version None)
Quarter: 2008Q1

REPORT INFORMATION
  Report Type: 
  Country: None (occurrence: None)
  Receive Date: 20080218
  Receipt Date: 20080206
  Transmission Date: 20080703
  Serious: Yes (Hospitalization, Other)
  Sender: FDA-Public Use
  Company Number: PHBS2007JP20516

PATIENT
  Age: 20 Year
  Sex: Male

DRUGS (3)
  1. BROTIZOLAM [Concomitant]
     Dates: start: 20071106, end: 20071130
  2. RIVOTRIL [Concomitant]
     Dates: start: 20071106, end: 20071130
  3. TEGRETOL [Suspect]
     Indication: EPILEPSY
     Dosage: 400MG DAILY
     Route: 048
     Dates: end: 20071130

REACTIONS (17)
  - ALANINE AMINOTRANSFERASE INCREASED [None]
  - ASPARTATE AMINOTRANSFERASE INCREASED [None]
  - BACK PAIN [None]
  - BLOOD LACTATE DEHYDROGENASE INCREASED [None]
  - C-REACTIVE PROTEIN INCREASED [None]
  - DIARRHOEA [None]
  - GAMMA-GLUTAMYLTRANSFERASE INCREASED [None]
  - LYMPHOCYTE COUNT DECREASED [None]
  - LYMPHOCYTE STIMULATION TEST POSITIVE [None]
  - MONOCYTE COUNT DECREASED [None]
  - NECK PAIN [None]
  - NEUTROPHIL COUNT INCREASED [None]
  - PROTEIN TOTAL DECREASED [None]
  - PYREXIA [None]
  - RASH GENERALISED [None]
  - ROAD TRAFFIC ACCIDENT [None]
  - STEVENS-JOHNSON SYNDROME [None]
